FAERS Safety Report 21305792 (Version 5)
Quarter: 2022Q4

REPORT INFORMATION
  Report Type: Spontaneous
  Country: US (occurrence: US)
  Receive Date: 20220908
  Receipt Date: 20221027
  Transmission Date: 20230113
  Serious: Yes (Other)
  Sender: FDA-Public Use
  Company Number: US-UNITED THERAPEUTICS-UNT-2022-020001

PATIENT
  Sex: Female

DRUGS (7)
  1. REMODULIN [Suspect]
     Active Substance: TREPROSTINIL
     Indication: Pulmonary arterial hypertension
     Dosage: UNK, CONTINUING
     Route: 058
     Dates: start: 20220804, end: 202208
  2. REMODULIN [Suspect]
     Active Substance: TREPROSTINIL
     Dosage: 0.0406 ?G/KG, CONTINUING
     Route: 058
     Dates: start: 202208
  3. REMODULIN [Suspect]
     Active Substance: TREPROSTINIL
     Dosage: 0.040 ?G/KG, CONTINUING
     Route: 058
     Dates: start: 202208
  4. REMODULIN [Suspect]
     Active Substance: TREPROSTINIL
     Indication: Pulmonary arterial hypertension
     Dosage: UNK, CONTINUING
     Route: 058
     Dates: start: 202208
  5. REMODULIN [Suspect]
     Active Substance: TREPROSTINIL
     Dosage: 0.0402 ?G/KG, CONTINUING
     Route: 058
     Dates: start: 2022
  6. REMODULIN [Suspect]
     Active Substance: TREPROSTINIL
     Dosage: 0.0429 ?G/KG, CONTINUING
     Route: 058
     Dates: start: 2022
  7. REMODULIN [Suspect]
     Active Substance: TREPROSTINIL
     Dosage: 0.05110 ?G/KG, CONTINUING
     Route: 058
     Dates: start: 20221017

REACTIONS (17)
  - Oxygen saturation decreased [Recovering/Resolving]
  - Nausea [Recovering/Resolving]
  - Pain in jaw [Unknown]
  - Constipation [Unknown]
  - Anxiety [Unknown]
  - Frustration tolerance decreased [Unknown]
  - Product use issue [Unknown]
  - Product administration interrupted [Unknown]
  - Device malfunction [Unknown]
  - Infusion site pain [Unknown]
  - Diarrhoea [Unknown]
  - Dyspnoea exertional [Recovered/Resolved]
  - Tachypnoea [Recovered/Resolved]
  - Breath sounds abnormal [Unknown]
  - Pruritus [Recovered/Resolved]
  - Perfume sensitivity [Unknown]
  - COVID-19 [Unknown]

NARRATIVE: CASE EVENT DATE: 20220101
